FAERS Safety Report 18975003 (Version 1)
Quarter: 2021Q1

REPORT INFORMATION
  Report Type: Spontaneous
  Country: IT (occurrence: IT)
  Receive Date: 20210306
  Receipt Date: 20210306
  Transmission Date: 20210420
  Serious: Yes (Hospitalization)
  Sender: FDA-Public Use
  Company Number: IT-AMGEN-ITASP2021031034

PATIENT

DRUGS (1)
  1. NEUPOGEN [Suspect]
     Active Substance: FILGRASTIM
     Indication: ALLOGENIC STEM CELL TRANSPLANTATION
     Dosage: 5 TO 10 MCG/KG/D
     Route: 058

REACTIONS (5)
  - Headache [Unknown]
  - Bone pain [Unknown]
  - Hepatitis C antibody positive [Unknown]
  - Hypocalcaemia [Unknown]
  - Poor venous access [Unknown]
